FAERS Safety Report 17960303 (Version 1)
Quarter: 2020Q2

REPORT INFORMATION
  Report Type: Other
  Country: IT (occurrence: IT)
  Receive Date: 20200630
  Receipt Date: 20200630
  Transmission Date: 20200714
  Serious: Yes (Hospitalization, Other)
  Sender: FDA-Public Use
  Company Number: IT-ASPEN-GLO2020IT006220

PATIENT
  Age: 10 Year
  Sex: Male
  Weight: 39 kg

DRUGS (1)
  1. BUSULFAN. [Suspect]
     Active Substance: BUSULFAN
     Indication: EWING^S SARCOMA
     Dosage: 112 MG, QD
     Route: 042
     Dates: start: 20200211, end: 20200215

REACTIONS (4)
  - Fluid retention [Recovered/Resolved]
  - Venoocclusive liver disease [Recovered/Resolved]
  - Pyrexia [Recovered/Resolved]
  - Hepatomegaly [Recovered/Resolved]

NARRATIVE: CASE EVENT DATE: 20200310
